FAERS Safety Report 9662658 (Version 2)
Quarter: 2013Q4

REPORT INFORMATION
  Report Type: Spontaneous
  Country: US (occurrence: US)
  Receive Date: 20131031
  Receipt Date: 20131031
  Transmission Date: 20140711
  Serious: No
  Sender: FDA-Public Use
  Company Number: US-PURDUE-USA-2011-0071855

PATIENT
  Age: 49 Year
  Sex: Male
  Weight: 93 kg

DRUGS (2)
  1. OXYCONTIN (NDA 22-272) [Suspect]
     Indication: BACK PAIN
     Dosage: 60 MG, TID
     Route: 048
  2. OXYCONTIN (NDA 22-272) [Suspect]
     Indication: ARTHRALGIA

REACTIONS (3)
  - Abdominal distension [Not Recovered/Not Resolved]
  - Drug effect decreased [Not Recovered/Not Resolved]
  - Constipation [Not Recovered/Not Resolved]
